FAERS Safety Report 8399730-9 (Version None)
Quarter: 2012Q1

REPORT INFORMATION
  Report Type: 
  Country: None (occurrence: None)
  Receive Date: 20120323
  Receipt Date: 20110816
  Transmission Date: 20120608
  Serious: Yes (Other)
  Sender: FDA-Public Use
  Company Number: 163-21880-11072504

PATIENT
  Age: 69 Year
  Sex: Female

DRUGS (5)
  1. LISINOPRIL [Concomitant]
  2. CEPHALEXIN (CEFALEXIN) (CAPSULES) [Concomitant]
  3. ACIPHEX [Concomitant]
  4. REVLIMID [Suspect]
     Indication: MYELODYSPLASTIC SYNDROME
     Dosage: 10 MG, DAILY X 28 DAYS, PO
     Route: 048
     Dates: start: 20110625
  5. DOXYCYCLINE (DOXYCYCLINE) (CAPSULES) [Concomitant]

REACTIONS (4)
  - WHITE BLOOD CELL COUNT DECREASED [None]
  - DYSPNOEA [None]
  - OEDEMA PERIPHERAL [None]
  - HAEMOGLOBIN DECREASED [None]
